FAERS Safety Report 10430080 (Version 1)
Quarter: 2014Q3

REPORT INFORMATION
  Report Type: Spontaneous
  Country: DE (occurrence: DE)
  Receive Date: 20140904
  Receipt Date: 20140904
  Transmission Date: 20150326
  Serious: Yes (Other)
  Sender: FDA-Public Use
  Company Number: DE-MYLAN-2014M1003190

PATIENT

DRUGS (6)
  1. BROMAZEPAM [Concomitant]
     Active Substance: BROMAZEPAM
     Dosage: 1.5-3MG, AS NEEDED
     Route: 065
  2. NORTRIPTYLINE [Interacting]
     Active Substance: NORTRIPTYLINE
     Indication: DEPRESSION
     Dosage: 75 MG, QD
     Route: 048
  3. MIRTAZAPINE. [Concomitant]
     Active Substance: MIRTAZAPINE
     Indication: DEPRESSION
     Dosage: 15 MG, QD
     Route: 065
  4. ESCITALOPRAM [Concomitant]
     Active Substance: ESCITALOPRAM OXALATE
     Indication: DEPRESSION
     Dosage: 20 MG, QD
     Route: 065
  5. MELPERONE HYDROCHLORIDE [Suspect]
     Active Substance: MELPERONE HYDROCHLORIDE
     Indication: SLEEP DISORDER
     Dosage: 50 MG, QD
     Route: 065
  6. LITHIUM [Concomitant]
     Active Substance: LITHIUM CARBONATE
     Indication: DEPRESSION
     Dosage: 900MG DAILY
     Route: 065

REACTIONS (7)
  - Constipation [Recovered/Resolved]
  - Drug level increased [None]
  - Drug interaction [Recovering/Resolving]
  - Dry mouth [Recovered/Resolved]
  - Photodermatosis [Recovered/Resolved]
  - Agitation [Recovered/Resolved]
  - Tremor [Recovered/Resolved]
